FAERS Safety Report 10381541 (Version 1)
Quarter: 2014Q1

REPORT INFORMATION
  Report Type: Spontaneous
  Country: US (occurrence: None)
  Receive Date: 20140306
  Receipt Date: 20140306
  Transmission Date: 20141002
  Serious: Yes (Death, Hospitalization)
  Sender: FDA-Public Use
  Company Number: 163-21880-13023615

PATIENT
  Age: 80 Year
  Sex: Female

DRUGS (27)
  1. REVLIMID (LENALIDOMIDE) (10 MILLIGRAM, CAPSULES) [Suspect]
     Indication: PLASMA CELL MYELOMA
     Route: 048
     Dates: start: 2009
  2. ASPIRIN (ACETYLSALICYLIC ACID) (ENTERIC-COATED TABLET) [Concomitant]
  3. DIOVAN (VALSARTAN) (TABLETS) [Concomitant]
  4. METOPROLOL TARTRATE (METOPROLOL TARTRATE) (TABLETS) (METOPROLOL TARTRATE) [Concomitant]
  5. NITROBID (GLYCERYL TRINITRATE) (SUSTAINED-RELEASE) [Concomitant]
  6. VITAMIN C (ASCORBIC ACID) (POWDER) [Concomitant]
  7. VITAMIN D (ERGOCALCIFEROL) (TABLETS) [Concomitant]
  8. XALATAN (LATANOPROST) (0.005 PERCENT, EYE DROPS) [Concomitant]
  9. CARDIZEM (DILTIAZEM HYDROCHLORIDE) (UNKNOWN) [Concomitant]
  10. VITAMIN K (PHYTOMENADIONE) (UNKNOWN) [Concomitant]
  11. FFP (BLOOD AND RELATED PRODUCTS) (UNKNOWN) [Concomitant]
  12. NEUPOGEN (FILGRASTIM) (UNKNOWN) [Concomitant]
  13. PROTONIX (UNKNOWN) [Concomitant]
  14. EPOETIN (EPOETIN ALFA) (UNKNOWN) [Concomitant]
  15. METOLAZONE (METOLAZONE) (UNKNOWN) [Concomitant]
  16. MEGACE (MEGESTROL ACETATE) (UNKNOWN) [Concomitant]
  17. TORSEMIDE (TORASEMIDE) (UNKNOWN) [Concomitant]
  18. CALCIUM ACETATE (CALCIUM ACETATE) (UNKNOWN) [Concomitant]
  19. MAGNESIUM (MAGNESIUM) (UNKNOWN) [Concomitant]
  20. ALBUTEROL (SALBUTAMOL) [Concomitant]
  21. ATROVENT (IPRATROPIUM BROMIDE) [Concomitant]
  22. RESTORIL (TEMAZEPAM) (UNKNOWN) [Concomitant]
  23. TYLENOL (PARACETAMOL) (UNKNOWN) [Concomitant]
  24. HYDROCODONE (HYDROCODONE) (UNKNOWN) [Concomitant]
  25. DUCOLAX (BISACODYL) (UNKNOWN) [Concomitant]
  26. MIRALAX (MACROGOL) (UNKNOWN) [Concomitant]
  27. ZOFRAN (ONDANSETRON HYDROCHLORIDE) (UNKNOWN) [Concomitant]

REACTIONS (2)
  - Renal failure acute [None]
  - Atrial fibrillation [None]
